FAERS Safety Report 13677387 (Version 1)
Quarter: 2017Q2

REPORT INFORMATION
  Report Type: Spontaneous
  Country: US (occurrence: US)
  Receive Date: 20170621
  Receipt Date: 20170621
  Transmission Date: 20170830
  Serious: Yes (Disabling)
  Sender: FDA-Public Use
  Company Number: None

PATIENT
  Age: 69 Year
  Sex: Female
  Weight: 76.5 kg

DRUGS (13)
  1. RESERVATOL [Concomitant]
  2. VITAMIN D [Concomitant]
     Active Substance: CHOLECALCIFEROL
  3. CLONAZEPAM. [Suspect]
     Active Substance: CLONAZEPAM
     Indication: STRESS
     Dosage: AT BEDTIME
     Route: 048
     Dates: start: 20031028, end: 20170115
  4. LEXAPRO [Concomitant]
     Active Substance: ESCITALOPRAM OXALATE
  5. LATANOPROST. [Concomitant]
     Active Substance: LATANOPROST
  6. CLONAZEPAM. [Suspect]
     Active Substance: CLONAZEPAM
     Indication: INSOMNIA
     Dosage: AT BEDTIME
     Route: 048
     Dates: start: 20031028, end: 20170115
  7. AMBIEN [Suspect]
     Active Substance: ZOLPIDEM TARTRATE
     Indication: INSOMNIA
     Route: 048
     Dates: start: 20150515, end: 20170115
  8. RESTASIS [Concomitant]
     Active Substance: CYCLOSPORINE
  9. TURMERIC [Concomitant]
     Active Substance: HERBALS\TURMERIC
  10. VITAMIN E [Concomitant]
     Active Substance: .ALPHA.-TOCOPHEROL
  11. MULTI-VITAMINS [Concomitant]
  12. CLONAZEPAM. [Suspect]
     Active Substance: CLONAZEPAM
     Indication: ANXIETY
     Dosage: AT BEDTIME
     Route: 048
     Dates: start: 20031028, end: 20170115
  13. FISH OIL [Concomitant]
     Active Substance: FISH OIL

REACTIONS (11)
  - Fatigue [None]
  - Intrusive thoughts [None]
  - Hyperacusis [None]
  - Photophobia [None]
  - Headache [None]
  - Malaise [None]
  - Sensory disturbance [None]
  - Abdominal pain upper [None]
  - Parosmia [None]
  - Abnormal dreams [None]
  - Insomnia [None]
